FAERS Safety Report 18867640 (Version 2)
Quarter: 2021Q1

REPORT INFORMATION
  Report Type: Spontaneous
  Country: PL (occurrence: PL)
  Receive Date: 20210209
  Receipt Date: 20210304
  Transmission Date: 20210420
  Serious: Yes (Hospitalization)
  Sender: FDA-Public Use
  Company Number: PL-PFIZER INC-2021103344

PATIENT
  Age: 70 Year
  Sex: Male
  Weight: 85 kg

DRUGS (3)
  1. LEVONOR [NOREPINEPHRINE BITARTRATE] [Concomitant]
     Indication: CIRCULATORY COLLAPSE
     Dosage: CONTINUEOUS INFUSION DEPENDING ON BP, 15?29 /JAN/2021
     Dates: start: 20210115, end: 20210129
  2. TOCILIZUMAB. [Suspect]
     Active Substance: TOCILIZUMAB
     Indication: COVID-19 PNEUMONIA
     Dosage: 600 MG, 2X/DAY (FRE: 12H)
     Route: 042
     Dates: start: 20210116, end: 20210117
  3. MEROPENEM. [Suspect]
     Active Substance: MEROPENEM
     Indication: COVID-19 PNEUMONIA
     Dosage: 1 G, FRE: 33 D
     Route: 042
     Dates: start: 20210116

REACTIONS (2)
  - Inflammatory marker decreased [Recovering/Resolving]
  - Off label use [Unknown]

NARRATIVE: CASE EVENT DATE: 20210116
